FAERS Safety Report 4709896-7 (Version None)
Quarter: 2005Q3

REPORT INFORMATION
  Report Type: 
  Country: None (occurrence: None)
  Receive Date: 20050708
  Receipt Date: 20050517
  Transmission Date: 20060218
  Serious: Yes (Death)
  Sender: FDA-Public Use
  Company Number: JP-BRISTOL-MYERS SQUIBB COMPANY-12972139

PATIENT
  Age: 63 Year
  Sex: Male

DRUGS (13)
  1. TAXOL [Suspect]
     Indication: LUNG ADENOCARCINOMA
     Route: 041
     Dates: start: 20050301, end: 20050301
  2. PARAPLATIN [Suspect]
     Indication: LUNG ADENOCARCINOMA
     Route: 041
     Dates: start: 20050301, end: 20050301
  3. VOLTAREN [Suspect]
     Route: 048
     Dates: start: 20050127, end: 20050202
  4. RADIATION THERAPY [Concomitant]
     Indication: METASTASES TO BONE
     Dates: start: 20050128, end: 20050210
  5. MS CONTIN [Concomitant]
     Route: 048
     Dates: start: 20050226, end: 20050301
  6. RESTAMIN [Concomitant]
     Route: 048
     Dates: start: 20050201, end: 20050301
  7. GASTER [Concomitant]
     Route: 041
     Dates: start: 20050201, end: 20050301
  8. KYTRIL [Concomitant]
     Route: 041
     Dates: start: 20050201, end: 20050301
  9. TERNELIN [Concomitant]
     Route: 048
     Dates: start: 20050127, end: 20050306
  10. CYTOTEC [Concomitant]
     Route: 048
     Dates: start: 20050127, end: 20050306
  11. DECADRON [Concomitant]
     Route: 048
     Dates: start: 20050201, end: 20050305
  12. NOVAMIN [Concomitant]
     Route: 048
     Dates: start: 20050201, end: 20050306
  13. DUROTEP [Concomitant]
     Route: 062
     Dates: start: 20050301, end: 20050306

REACTIONS (10)
  - BLOOD LACTATE DEHYDROGENASE INCREASED [None]
  - BOWEL MOVEMENT IRREGULARITY [None]
  - C-REACTIVE PROTEIN INCREASED [None]
  - CHEST PAIN [None]
  - INTESTINAL PERFORATION [None]
  - NEUTROPHIL PERCENTAGE INCREASED [None]
  - PERITONITIS [None]
  - PYREXIA [None]
  - SUDDEN DEATH [None]
  - WHITE BLOOD CELL COUNT DECREASED [None]
